FAERS Safety Report 24745013 (Version 2)
Quarter: 2024Q4

REPORT INFORMATION
  Report Type: Spontaneous
  Country: JP (occurrence: JP)
  Receive Date: 20241217
  Receipt Date: 20241220
  Transmission Date: 20250114
  Serious: Yes (Death, Life-Threatening, Hospitalization, Other)
  Sender: PFIZER
  Company Number: JP-MLMSERVICE-20241206-PI281060-00270-1

PATIENT
  Age: 64 Year
  Sex: Male

DRUGS (13)
  1. METHYLPREDNISOLONE [Suspect]
     Active Substance: METHYLPREDNISOLONE
     Indication: Dermatomyositis
     Dosage: 1000 MG, HIGH-DOSE GLUCOCORTICOIDS
  2. METHYLPREDNISOLONE [Suspect]
     Active Substance: METHYLPREDNISOLONE
     Indication: Interstitial lung disease
     Dosage: 125 MG
  3. METHYLPREDNISOLONE [Suspect]
     Active Substance: METHYLPREDNISOLONE
     Dosage: 80 MG
  4. METHYLPREDNISOLONE [Suspect]
     Active Substance: METHYLPREDNISOLONE
     Dosage: 500 MG
  5. PREDNISOLONE [Suspect]
     Active Substance: PREDNISOLONE
     Indication: Dermatomyositis
     Dosage: 125 MG, HIGH-DOSE GLUCOCORTICOIDS
  6. PREDNISOLONE [Suspect]
     Active Substance: PREDNISOLONE
     Indication: Interstitial lung disease
     Dosage: 80 MG, HIGH-DOSE GLUCOCORTICOIDS
  7. PREDNISOLONE [Suspect]
     Active Substance: PREDNISOLONE
     Dosage: 60 MG, 60 MG, HIGH-DOSE GLUCOCORTICOIDS
  8. TACROLIMUS [Concomitant]
     Active Substance: TACROLIMUS
     Indication: Dermatomyositis
     Dosage: 4 MG
  9. TACROLIMUS [Concomitant]
     Active Substance: TACROLIMUS
     Indication: Interstitial lung disease
     Dosage: 6 MG
  10. TACROLIMUS [Concomitant]
     Active Substance: TACROLIMUS
     Dosage: 10 MG
  11. TACROLIMUS [Concomitant]
     Active Substance: TACROLIMUS
     Dosage: 12 MG
  12. CYCLOPHOSPHAMIDE [Concomitant]
     Active Substance: CYCLOPHOSPHAMIDE
     Indication: Dermatomyositis
     Dosage: 500 MG/M2
     Route: 042
  13. CYCLOPHOSPHAMIDE [Concomitant]
     Active Substance: CYCLOPHOSPHAMIDE
     Indication: Interstitial lung disease

REACTIONS (6)
  - Diffuse alveolar damage [Fatal]
  - Pneumonia bacterial [Fatal]
  - Interstitial lung disease [Fatal]
  - Pneumomediastinum [Recovering/Resolving]
  - Subcutaneous emphysema [Recovered/Resolved]
  - Pneumothorax [Unknown]
